FAERS Safety Report 8556089-1 (Version None)
Quarter: 2012Q3

REPORT INFORMATION
  Report Type: 
  Country: None (occurrence: None)
  Receive Date: 20120719
  Receipt Date: 20120703
  Transmission Date: 20120928
  Serious: Yes (Hospitalization)
  Sender: FDA-Public Use
  Company Number: TPA2012A04332

PATIENT
  Age: 63 Year
  Sex: Male
  Weight: 140.6151 kg

DRUGS (5)
  1. METFORMIN HCL [Concomitant]
  2. ACTOS [Suspect]
     Indication: DIABETES MELLITUS
     Dosage: 30 MG, 1 IN 1 D, PER ORAL
     Route: 048
     Dates: start: 20110101
  3. GLIMEPIRIDE [Concomitant]
  4. ENALAPRIL MALEATE [Concomitant]
  5. SEVERAL UNSPECIFIED HEART MEDICATIONS (CARDIAC THERAPY) [Concomitant]

REACTIONS (4)
  - NECK PAIN [None]
  - SINUSITIS [None]
  - CORONARY ARTERY OCCLUSION [None]
  - BACK PAIN [None]
